FAERS Safety Report 12614287 (Version 2)
Quarter: 2016Q3

REPORT INFORMATION
  Report Type: Report from Study
  Country: CO (occurrence: CO)
  Receive Date: 20160802
  Receipt Date: 20160816
  Transmission Date: 20161109
  Serious: Yes (Other)
  Sender: FDA-Public Use
  Company Number: CO-JNJFOC-20160724812

PATIENT
  Age: 61 Year
  Sex: Female
  Weight: 66 kg

DRUGS (1)
  1. IMBRUVICA [Suspect]
     Active Substance: IBRUTINIB
     Indication: CHRONIC LYMPHOCYTIC LEUKAEMIA
     Route: 048
     Dates: start: 20160210

REACTIONS (7)
  - Laboratory test abnormal [Recovering/Resolving]
  - Platelet count abnormal [None]
  - Haemoglobin decreased [Recovering/Resolving]
  - Pain in extremity [Recovering/Resolving]
  - Influenza like illness [Recovering/Resolving]
  - Lymphadenopathy [Recovering/Resolving]
  - Thyroid cyst [Recovering/Resolving]

NARRATIVE: CASE EVENT DATE: 20160718
